FAERS Safety Report 12313049 (Version 1)
Quarter: 2016Q2

REPORT INFORMATION
  Report Type: Spontaneous
  Country: US (occurrence: None)
  Receive Date: 20160427
  Receipt Date: 20160427
  Transmission Date: 20160815
  Serious: No
  Sender: FDA-Public Use
  Company Number: None

PATIENT
  Age: 61 Year
  Sex: Female

DRUGS (1)
  1. COPAXONE [Suspect]
     Active Substance: GLATIRAMER ACETATE
     Indication: PRODUCT USED FOR UNKNOWN INDICATION
     Route: 058
     Dates: start: 20150216

REACTIONS (5)
  - Injection site pain [None]
  - Chills [None]
  - Peripheral swelling [None]
  - Palpitations [None]
  - Pain [None]

NARRATIVE: CASE EVENT DATE: 20160425
